FAERS Safety Report 8204907-9 (Version None)
Quarter: 2012Q1

REPORT INFORMATION
  Report Type: 
  Country: None (occurrence: None)
  Receive Date: 20120313
  Receipt Date: 20120312
  Transmission Date: 20120608
  Serious: Yes (Hospitalization)
  Sender: FDA-Public Use
  Company Number: US-BAYER-2012-024085

PATIENT
  Sex: Male

DRUGS (1)
  1. BETASERON [Suspect]

REACTIONS (8)
  - URTICARIA [None]
  - CELLULITIS [None]
  - THROMBOSIS [None]
  - DYSPNOEA [None]
  - BLOOD SODIUM DECREASED [None]
  - STEVENS-JOHNSON SYNDROME [None]
  - PULMONARY EMBOLISM [None]
  - DEHYDRATION [None]
